FAERS Safety Report 17297245 (Version 1)
Quarter: 2020Q1

REPORT INFORMATION
  Report Type: Spontaneous
  Country: IL (occurrence: IL)
  Receive Date: 20200122
  Receipt Date: 20200122
  Transmission Date: 20200409
  Serious: Yes (Other)
  Sender: FDA-Public Use
  Company Number: IL-TEVA-2020-IL-1172505

PATIENT
  Sex: Female

DRUGS (1)
  1. NAXYN [Suspect]
     Active Substance: NAPROXEN

REACTIONS (2)
  - Choking [Unknown]
  - Product use complaint [Unknown]
